FAERS Safety Report 14851458 (Version 1)
Quarter: 2018Q2

REPORT INFORMATION
  Report Type: Spontaneous
  Country: FR (occurrence: FR)
  Receive Date: 20180507
  Receipt Date: 20180507
  Transmission Date: 20180711
  Serious: Yes (Other)
  Sender: FDA-Public Use
  Company Number: FR-MERCK KGAA-2047265

PATIENT
  Age: 50 Year
  Sex: Male

DRUGS (1)
  1. NOVOTHYROX [Suspect]
     Active Substance: LEVOTHYROXINE SODIUM
     Indication: HYPOTHYROIDISM

REACTIONS (17)
  - Food craving [None]
  - Weight increased [None]
  - Musculoskeletal chest pain [None]
  - Somnolence [None]
  - Myalgia [None]
  - Fatigue [None]
  - Loss of personal independence in daily activities [None]
  - Hyperthyroidism [None]
  - Asthenia [None]
  - Morose [None]
  - Bradyphrenia [None]
  - Gastrointestinal disorder [None]
  - Palpitations [None]
  - Intellectual disability [None]
  - Social avoidant behaviour [None]
  - Anxiety [None]
  - Mental fatigue [None]

NARRATIVE: CASE EVENT DATE: 20170522
